FAERS Safety Report 7417030-8 (Version None)
Quarter: 2011Q2

REPORT INFORMATION
  Report Type: 
  Country: None (occurrence: None)
  Receive Date: 20110415
  Receipt Date: 20091122
  Transmission Date: 20111010
  Serious: Yes (Death, Other)
  Sender: FDA-Public Use
  Company Number: US-BAYER-200940309NA

PATIENT
  Age: 76 Year
  Sex: Male

DRUGS (11)
  1. NEPHROCAPS [Concomitant]
     Dosage: UNK UNK, QD
  2. RENAGEL [Concomitant]
     Dosage: 800 MG, TID
  3. EPOGEN [Concomitant]
     Dosage: 10,000 UNITS TUESDAY, THURSDAY, SATURDAY
     Route: 058
  4. AMIODARONE [Concomitant]
     Dosage: 200 MG, QD
  5. FOLTX [CYANOCOBALAMIN,FOLIC ACID,PYRIDOXINE] [Concomitant]
     Dosage: UNK UNK, QD
  6. AUGMENTIN [Concomitant]
     Dosage: 875 MG, BID
  7. TRASYLOL [Suspect]
     Indication: CORONARY ARTERY BYPASS
     Dosage: UNK
     Route: 042
     Dates: start: 20031231
  8. CORDARONE [Concomitant]
     Dosage: 200 MG, QD
  9. REGLAN [Concomitant]
     Dosage: 5 MG, TID
  10. INSULIN [Concomitant]
     Dosage: 20 UNITS/MORNING
  11. LEVAQUIN [Concomitant]
     Dosage: 250 MG/ ONE EVERY 48 HOURS

REACTIONS (13)
  - EMOTIONAL DISTRESS [None]
  - FEAR [None]
  - RENAL FAILURE [None]
  - ANXIETY [None]
  - ANHEDONIA [None]
  - RENAL INJURY [None]
  - MULTI-ORGAN FAILURE [None]
  - DEATH [None]
  - UNEVALUABLE EVENT [None]
  - INJURY [None]
  - RENAL IMPAIRMENT [None]
  - STRESS [None]
  - PAIN [None]
